FAERS Safety Report 11323828 (Version 1)
Quarter: 2015Q3

REPORT INFORMATION
  Report Type: Spontaneous
  Country: GB (occurrence: GB)
  Receive Date: 20150730
  Receipt Date: 20150730
  Transmission Date: 20151125
  Serious: Yes (Other)
  Sender: FDA-Public Use
  Company Number: GB-DRREDDYS-GER/UKI/15/0049652

PATIENT
  Age: 16 Year
  Sex: Female

DRUGS (1)
  1. FLUOXETINE [Suspect]
     Active Substance: FLUOXETINE\FLUOXETINE HYDROCHLORIDE
     Indication: SOCIAL PHOBIA
     Route: 048
     Dates: start: 20150320, end: 20150623

REACTIONS (5)
  - Incorrect dose administered [Unknown]
  - Disinhibition [Recovered/Resolved]
  - Speech disorder [Recovered/Resolved]
  - Hypomania [Recovered/Resolved]
  - Irritability [Recovered/Resolved]

NARRATIVE: CASE EVENT DATE: 20150615
